FAERS Safety Report 4470912-1 (Version None)
Quarter: 2004Q4

REPORT INFORMATION
  Report Type: 
  Country: None (occurrence: None)
  Receive Date: 20041011
  Receipt Date: 20040102
  Transmission Date: 20050328
  Serious: Yes (Hospitalization)
  Sender: FDA-Public Use
  Company Number: FR-MERCK-0401FRA00001

PATIENT
  Age: 45 Year
  Sex: Male
  Weight: 69 kg

DRUGS (6)
  1. ASCORBIC ACID [Concomitant]
     Route: 065
     Dates: start: 20030922
  2. CROMOLYN SODIUM [Concomitant]
     Route: 065
     Dates: start: 20030922
  3. FLUTICASONE PROPIONATE AND SALMETEROL XINAFOATE [Suspect]
     Indication: ASTHMA
     Route: 055
     Dates: start: 20030821
  4. MAGNESIUM LACTATE AND PYRIDOXINE HYDROCHLORIDE [Concomitant]
     Route: 065
     Dates: start: 20030922
  5. MOMETASONE FUROATE [Concomitant]
     Route: 065
     Dates: start: 20030922
  6. SINGULAIR [Suspect]
     Indication: ASTHMA
     Route: 048
     Dates: start: 20030821, end: 20031026

REACTIONS (2)
  - ALLERGIC GRANULOMATOUS ANGIITIS [None]
  - ASTHMA [None]
